FAERS Safety Report 10367572 (Version 1)
Quarter: 2014Q3

REPORT INFORMATION
  Report Type: Spontaneous
  Country: US (occurrence: US)
  Receive Date: 20140807
  Receipt Date: 20140807
  Transmission Date: 20150326
  Serious: No
  Sender: FDA-Public Use
  Company Number: US-TARO-2013P1021674

PATIENT
  Sex: Male

DRUGS (1)
  1. DESONIDE CREAM USP 0.05% [Suspect]
     Active Substance: DESONIDE
     Route: 061
     Dates: start: 2013

REACTIONS (1)
  - Dry skin [Unknown]

NARRATIVE: CASE EVENT DATE: 2013
